FAERS Safety Report 6215231-8 (Version None)
Quarter: 2009Q2

REPORT INFORMATION
  Report Type: 
  Country: None (occurrence: None)
  Receive Date: 20090604
  Receipt Date: 20090529
  Transmission Date: 20091009
  Serious: Yes (Other)
  Sender: FDA-Public Use
  Company Number: US-PFIZER INC-2008007824

PATIENT
  Sex: Female

DRUGS (2)
  1. XALATAN [Suspect]
     Dosage: UNK
     Dates: end: 20090409
  2. LUMIGAN [Suspect]
     Indication: INTRAOCULAR PRESSURE INCREASED
     Dates: start: 20090410

REACTIONS (7)
  - BACK PAIN [None]
  - CARDIAC DISORDER [None]
  - DYSPEPSIA [None]
  - HEART RATE INCREASED [None]
  - INTRAOCULAR PRESSURE INCREASED [None]
  - RETINAL VASCULAR THROMBOSIS [None]
  - SEDATION [None]
